FAERS Safety Report 16942558 (Version 1)
Quarter: 2019Q4

REPORT INFORMATION
  Report Type: Spontaneous
  Country: US (occurrence: US)
  Receive Date: 20191021
  Receipt Date: 20191021
  Transmission Date: 20200122
  Serious: Yes (Other)
  Sender: FDA-Public Use
  Company Number: US-ELI_LILLY_AND_COMPANY-US201910006828

PATIENT
  Sex: Male

DRUGS (2)
  1. VIAGRA [Suspect]
     Active Substance: SILDENAFIL CITRATE
     Indication: ERECTILE DYSFUNCTION
     Dosage: UNK,4 PILLS PER MONTH OR 8 TIMES PER MONTH
     Route: 065
     Dates: start: 200303, end: 201401
  2. CIALIS [Suspect]
     Active Substance: TADALAFIL
     Indication: ERECTILE DYSFUNCTION
     Dosage: UNK, UNKNOWN
     Route: 065
     Dates: start: 20100104

REACTIONS (13)
  - Hypertension [Unknown]
  - Hand-foot-and-mouth disease [Recovered/Resolved]
  - Type 2 diabetes mellitus [Unknown]
  - Intervertebral disc degeneration [Unknown]
  - Accident [Not Recovered/Not Resolved]
  - Back injury [Not Recovered/Not Resolved]
  - Dyslipidaemia [Unknown]
  - Lipoma [Recovered/Resolved]
  - Diverticulum [Unknown]
  - Benign prostatic hyperplasia [Unknown]
  - Neck injury [Not Recovered/Not Resolved]
  - Malignant melanoma [Unknown]
  - Staphylococcal infection [Recovered/Resolved]

NARRATIVE: CASE EVENT DATE: 20081216
